FAERS Safety Report 17032828 (Version 1)
Quarter: 2019Q4

REPORT INFORMATION
  Report Type: Spontaneous
  Country: US (occurrence: US)
  Receive Date: 20191014
  Receipt Date: 20191014
  Transmission Date: 20200122
  Serious: Yes (Hospitalization)
  Sender: FDA-Public Use
  Company Number: None

PATIENT
  Age: 8 Year
  Sex: Female

DRUGS (6)
  1. RANITIDINE. [Suspect]
     Active Substance: RANITIDINE
     Indication: CYSTIC FIBROSIS
     Route: 048
     Dates: start: 20190815
  2. AQUADEKS [Concomitant]
     Active Substance: MINERALS\VITAMINS
  3. PULMOZYME [Suspect]
     Active Substance: DORNASE ALFA
     Indication: CYSTIC FIBROSIS
     Route: 055
     Dates: start: 20190828
  4. IPRATROPIUM [Concomitant]
     Active Substance: IPRATROPIUM
  5. PROAIR HFA [Concomitant]
     Active Substance: ALBUTEROL SULFATE
  6. SOD CHLORIDE [Concomitant]

REACTIONS (1)
  - Product use issue [None]

NARRATIVE: CASE EVENT DATE: 20191007
